FAERS Safety Report 12948011 (Version 1)
Quarter: 2016Q4

REPORT INFORMATION
  Report Type: Spontaneous
  Country: CA (occurrence: CA)
  Receive Date: 20161116
  Receipt Date: 20161116
  Transmission Date: 20170207
  Serious: Yes (Hospitalization)
  Sender: FDA-Public Use
  Company Number: CA-BAYER-2016-218758

PATIENT
  Sex: Female

DRUGS (1)
  1. MIRENA [Suspect]
     Active Substance: LEVONORGESTREL
     Dosage: 20 MCG/24HR, CONT
     Route: 015
     Dates: start: 201608, end: 201610

REACTIONS (3)
  - Anxiety [Not Recovered/Not Resolved]
  - Panic attack [None]
  - Chest pain [None]

NARRATIVE: CASE EVENT DATE: 2016
